FAERS Safety Report 12436248 (Version 1)
Quarter: 2016Q2

REPORT INFORMATION
  Report Type: Spontaneous
  Country: IN (occurrence: IN)
  Receive Date: 20160605
  Receipt Date: 20160605
  Transmission Date: 20160815
  Serious: Yes (Other)
  Sender: FDA-Public Use
  Company Number: IN-JNJFOC-20160601056

PATIENT
  Age: 76 Year
  Sex: Female
  Weight: 50 kg

DRUGS (3)
  1. XARELTO [Suspect]
     Active Substance: RIVAROXABAN
     Indication: PULMONARY EMBOLISM
     Route: 048
  2. ENOXAPARIN [Concomitant]
     Active Substance: ENOXAPARIN
     Route: 058
  3. XARELTO [Suspect]
     Active Substance: RIVAROXABAN
     Indication: EMBOLISM VENOUS
     Route: 048

REACTIONS (3)
  - Dyspnoea [Unknown]
  - Pyrexia [Unknown]
  - Cardiac ventricular thrombosis [Unknown]
